FAERS Safety Report 26180737 (Version 1)
Quarter: 2025Q4

REPORT INFORMATION
  Report Type: Spontaneous
  Country: US (occurrence: None)
  Receive Date: 20251219
  Receipt Date: 20251219
  Transmission Date: 20260117
  Serious: Yes (Hospitalization)
  Sender: FDA-CTU
  Company Number: None

PATIENT
  Age: 9 Week
  Sex: Male
  Weight: 6.66 kg

DRUGS (3)
  1. MEMANTINE [Suspect]
     Active Substance: MEMANTINE
     Indication: Migraine
     Dosage: OTHER QUANTITY : 1 TABLET(S);?FREQUENCY : TWICE A DAY;
     Route: 048
     Dates: start: 20240905
  2. Ursodiol 0.8mL (60mg/mL) [Concomitant]
     Dosage: FREQUENCY : TWICE A DAY;
  3. VITAMIN D [Concomitant]
     Active Substance: VITAMIN D NOS

REACTIONS (4)
  - Maternal drugs affecting foetus [None]
  - Liver injury [None]
  - Neonatal cholestasis [None]
  - Exposure via breast milk [None]

NARRATIVE: CASE EVENT DATE: 20250925
